FAERS Safety Report 7075703-3 (Version None)
Quarter: 2010Q4

REPORT INFORMATION
  Report Type: 
  Country: None (occurrence: None)
  Receive Date: 20101031
  Receipt Date: 20101019
  Transmission Date: 20110411
  Serious: Yes (Hospitalization)
  Sender: FDA-Public Use
  Company Number: PHHY2009TW60834

PATIENT
  Sex: Female

DRUGS (1)
  1. EXJADE [Suspect]
     Indication: APLASTIC ANAEMIA
     Dosage: 8 TAB
     Route: 048

REACTIONS (9)
  - ASTHENIA [None]
  - DIZZINESS [None]
  - HAEMOGLOBIN DECREASED [None]
  - HAEMORRHAGE [None]
  - HYPOPHAGIA [None]
  - MOUTH ULCERATION [None]
  - PLATELET COUNT DECREASED [None]
  - VOMITING [None]
  - WHITE BLOOD CELL COUNT DECREASED [None]
